FAERS Safety Report 10469560 (Version 1)
Quarter: 2014Q3

REPORT INFORMATION
  Report Type: Spontaneous
  Country: US (occurrence: None)
  Receive Date: 20140919
  Receipt Date: 20140919
  Transmission Date: 20150326
  Serious: Yes (Hospitalization, Other)
  Sender: FDA-Public Use
  Company Number: US-ZYDUS-005001

PATIENT
  Age: 16 Year
  Sex: Female

DRUGS (3)
  1. LACOSAMIDE [Suspect]
     Active Substance: LACOSAMIDE
  2. LEVETIRACETAM. [Suspect]
     Active Substance: LEVETIRACETAM
  3. CYCLOBENZAPRINE [Suspect]
     Active Substance: CYCLOBENZAPRINE

REACTIONS (7)
  - Unresponsive to stimuli [None]
  - Intentional overdose [None]
  - Generalised tonic-clonic seizure [None]
  - Ventricular fibrillation [None]
  - Electrocardiogram QRS complex prolonged [None]
  - Sinus tachycardia [None]
  - Cardiac arrest [None]
